FAERS Safety Report 4433731-8 (Version None)
Quarter: 2004Q3

REPORT INFORMATION
  Report Type: 
  Country: None (occurrence: None)
  Receive Date: 20040824
  Receipt Date: 20040824
  Transmission Date: 20050211
  Serious: Yes (Other)
  Sender: FDA-Public Use
  Company Number: None

PATIENT
  Age: 40 Year
  Sex: Female
  Weight: 92.5338 kg

DRUGS (17)
  1. GEODON [Suspect]
     Dosage: 80 MG BY MOUTH TWICE A DAY
     Dates: start: 20040504, end: 20040526
  2. ZOLOFT [Suspect]
     Dosage: 100 MG BY MOUTH EACH AM
     Dates: start: 20040407, end: 20040526
  3. FLAGYL [Suspect]
     Indication: FUNGAL INFECTION
     Dosage: 500 MG BY MOUTH TWICE A DAY
     Dates: start: 20040514, end: 20040525
  4. ZYPREXA [Concomitant]
  5. HYDROXYZINE [Concomitant]
  6. CYPROHEPTADINE HCL [Concomitant]
  7. AMANTDINE [Concomitant]
  8. NEURONTIN [Concomitant]
  9. RELAFEN [Concomitant]
  10. FLAGYL [Concomitant]
  11. OYSTER SHELL CALCIUM [Concomitant]
  12. ELIMITE/PERMETHRIN [Concomitant]
  13. MILK OF MAGNESIA TAB [Concomitant]
  14. MAALOX [Concomitant]
  15. CHAPSTICK [Concomitant]
  16. MULTIVITAMIN + ZINC/ NO IRON [Concomitant]
  17. IBUPROFEN [Concomitant]

REACTIONS (7)
  - BLOOD PRESSURE DIASTOLIC DECREASED [None]
  - DIARRHOEA [None]
  - DRUG INTERACTION [None]
  - HEART RATE DECREASED [None]
  - HYPERHIDROSIS [None]
  - SEROTONIN SYNDROME [None]
  - TREMOR [None]
